FAERS Safety Report 9740056 (Version 1)
Quarter: 2013Q4

REPORT INFORMATION
  Report Type: Spontaneous
  Country: US (occurrence: US)
  Receive Date: 20131209
  Receipt Date: 20131209
  Transmission Date: 20140711
  Serious: Yes (Death, Other)
  Sender: FDA-Public Use
  Company Number: US-BRISTOL-MYERS SQUIBB COMPANY-19865229

PATIENT
  Sex: Male

DRUGS (1)
  1. ELIQUIS [Suspect]
     Dates: start: 201307

REACTIONS (2)
  - Death [Fatal]
  - Atrial flutter [Unknown]
